FAERS Safety Report 12831900 (Version 2)
Quarter: 2016Q4

REPORT INFORMATION
  Report Type: Spontaneous
  Country: FR (occurrence: FR)
  Receive Date: 20161010
  Receipt Date: 20161025
  Transmission Date: 20170207
  Serious: Yes (Other)
  Sender: FDA-Public Use
  Company Number: FR-BAXTER-2016BAX051774

PATIENT
  Age: 70 Year
  Sex: Female

DRUGS (8)
  1. NAVELBINE [Suspect]
     Active Substance: VINORELBINE TARTRATE
     Indication: BREAST CANCER METASTATIC
     Dosage: THERAPY DURATION: 1 MONTH 5 DAYS 12 HRS; MONDAY, WEDNESDAY AND FRIDAY; SOFT CAPSULE
     Route: 048
     Dates: start: 20160627, end: 20160801
  2. XELODA [Suspect]
     Active Substance: CAPECITABINE
     Indication: CHEMOTHERAPY
     Route: 065
  3. ENDOXAN 1000 MG, LYOPHILISAT POUR SOLUTION INJECTABLE [Suspect]
     Active Substance: CYCLOPHOSPHAMIDE
     Indication: SKELETAL INJURY
     Dosage: CHEMOTHERAPY (SECOND LINE TREATMENT)
     Route: 065
     Dates: start: 2014
  4. PARACETAMOL [Suspect]
     Active Substance: ACETAMINOPHEN
     Indication: PAIN
     Route: 065
  5. TAXOL [Suspect]
     Active Substance: PACLITAXEL
     Indication: SKELETAL INJURY
     Dosage: CHEMOTHERAPY (SECOND LINE TREATMENT)
     Route: 065
     Dates: start: 2014
  6. AROMASINE [Suspect]
     Active Substance: EXEMESTANE
     Indication: BREAST CANCER METASTATIC
     Dosage: ADJUVANT CHEMOTHERAPY
     Route: 065
  7. CAELYX [Suspect]
     Active Substance: DOXORUBICIN HYDROCHLORIDE
     Indication: SKELETAL INJURY
     Dosage: CHEMOTHERAPY (SECOND LINE TREATMENT)
     Route: 065
     Dates: start: 2014
  8. XGEVA [Suspect]
     Active Substance: DENOSUMAB
     Indication: PRODUCT USED FOR UNKNOWN INDICATION
     Dosage: MONTHLY INJECTIONS
     Route: 065

REACTIONS (5)
  - Cholestasis [Recovering/Resolving]
  - Off label use [Unknown]
  - Drug-induced liver injury [Recovering/Resolving]
  - Inappropriate schedule of drug administration [Unknown]
  - Abdominal pain upper [Recovered/Resolved]

NARRATIVE: CASE EVENT DATE: 20160627
